FAERS Safety Report 6974422-9 (Version None)
Quarter: 2010Q3

REPORT INFORMATION
  Report Type: 
  Country: None (occurrence: None)
  Receive Date: 20100909
  Receipt Date: 20100831
  Transmission Date: 20110219
  Serious: Yes (Other)
  Sender: FDA-Public Use
  Company Number: PHHY2010US58001

PATIENT
  Sex: Male

DRUGS (9)
  1. RECLAST [Suspect]
     Dosage: 5 MG
     Route: 042
     Dates: start: 20090428
  2. CRESTOR [Concomitant]
     Dosage: UNK
  3. HYDROCHLOROTHIAZIDE [Concomitant]
     Dosage: UNK
  4. ALLOPURINOL [Concomitant]
     Dosage: UNK
  5. POTASSIUM CITRATE [Concomitant]
     Dosage: UNK
  6. OMEPRAZOLE [Concomitant]
     Dosage: UNK
  7. SINGULAIR [Concomitant]
     Dosage: UNK
  8. LOVAZA [Concomitant]
     Dosage: UNK
  9. ASPIRIN [Concomitant]
     Dosage: UNK

REACTIONS (2)
  - CLAVICLE FRACTURE [None]
  - ROAD TRAFFIC ACCIDENT [None]
